FAERS Safety Report 14258319 (Version 1)
Quarter: 2017Q4

REPORT INFORMATION
  Report Type: Spontaneous
  Country: US (occurrence: US)
  Receive Date: 20171206
  Receipt Date: 20171206
  Transmission Date: 20180321
  Serious: No
  Sender: FDA-Public Use
  Company Number: None

PATIENT
  Sex: Female

DRUGS (1)
  1. ALINIA [Suspect]
     Active Substance: NITAZOXANIDE
     Indication: IRRITABLE BOWEL SYNDROME
     Route: 048
     Dates: start: 20171114

REACTIONS (4)
  - Hypersensitivity [None]
  - Pruritus [None]
  - Nausea [None]
  - Urticaria [None]
